FAERS Safety Report 8353523-7 (Version None)
Quarter: 2012Q2

REPORT INFORMATION
  Report Type: 
  Country: None (occurrence: None)
  Receive Date: 20120511
  Receipt Date: 20110505
  Transmission Date: 20120825
  Serious: No
  Sender: FDA-Public Use
  Company Number: US-GLAXOSMITHKLINE-A0926873A

PATIENT
  Age: 53 Year
  Sex: Female
  Weight: 95.5 kg

DRUGS (12)
  1. VITAMIN D [Concomitant]
  2. TYLENOL (CAPLET) [Concomitant]
     Route: 048
  3. ZOFRAN [Concomitant]
     Route: 048
  4. MULTI-VITAMIN [Concomitant]
     Route: 048
  5. CALCIUM 500 [Concomitant]
  6. PROCHLORPERAZINE [Concomitant]
  7. TYKERB [Suspect]
     Dosage: 1250MG PER DAY
     Route: 048
     Dates: start: 20110428
  8. ACIDOPHILIS [Concomitant]
     Route: 048
  9. COREG [Concomitant]
     Route: 048
  10. COUMADIN [Concomitant]
     Route: 048
  11. CELEXA [Concomitant]
     Route: 048
  12. PERCOCET [Concomitant]

REACTIONS (3)
  - NAUSEA [None]
  - ARTHRALGIA [None]
  - DIARRHOEA [None]
